FAERS Safety Report 20004313 (Version 3)
Quarter: 2022Q1

REPORT INFORMATION
  Report Type: Report from Study
  Country: US (occurrence: None)
  Receive Date: 20211028
  Receipt Date: 20220113
  Transmission Date: 20220423
  Serious: Yes (Hospitalization, Other)
  Sender: FDA-Public Use
  Company Number: US-MERCK HEALTHCARE KGAA-9274733

PATIENT
  Age: 48 Year
  Sex: Female
  Weight: 104 kg

DRUGS (1)
  1. REBIF [Suspect]
     Active Substance: INTERFERON BETA-1A
     Indication: Multiple sclerosis
     Route: 058
     Dates: start: 20210308

REACTIONS (13)
  - Syncope [Unknown]
  - Atrial fibrillation [Unknown]
  - Electrolyte imbalance [Unknown]
  - Blood pressure decreased [Recovered/Resolved]
  - COVID-19 [Unknown]
  - Hepatic enzyme increased [Recovering/Resolving]
  - Mobility decreased [Unknown]
  - Hypoaesthesia [Recovered/Resolved]
  - Furuncle [Unknown]
  - Dehydration [Unknown]
  - Exposure to SARS-CoV-2 [Unknown]
  - Product dose omission issue [Recovered/Resolved]
  - Product storage error [Recovered/Resolved]

NARRATIVE: CASE EVENT DATE: 20210101
